FAERS Safety Report 9847266 (Version 1)
Quarter: 2014Q1

REPORT INFORMATION
  Report Type: Spontaneous
  Country: US (occurrence: US)
  Receive Date: 20140127
  Receipt Date: 20140127
  Transmission Date: 20141002
  Serious: Yes (Hospitalization)
  Sender: FDA-Public Use
  Company Number: US-DYAX CORP.-2013DX000098

PATIENT
  Age: 36 Year
  Sex: Female
  Weight: 69.46 kg

DRUGS (10)
  1. KALBITOR [Suspect]
     Indication: HEREDITARY ANGIOEDEMA
     Route: 058
     Dates: start: 20130515, end: 20130515
  2. KALBITOR [Suspect]
     Route: 058
     Dates: start: 20130516, end: 20130516
  3. KALBITOR [Suspect]
     Route: 058
     Dates: start: 2012
  4. PROPRANOLOL [Concomitant]
     Indication: HYPERTENSION
     Route: 048
     Dates: start: 2011
  5. PROPRANOLOL [Concomitant]
     Indication: MIGRAINE
  6. CINRYZE [Concomitant]
     Indication: HEREDITARY ANGIOEDEMA
     Route: 042
     Dates: start: 201204
  7. PRILOSEC [Concomitant]
     Indication: GASTROOESOPHAGEAL REFLUX DISEASE
     Route: 048
  8. ZOFRAN [Concomitant]
     Indication: NAUSEA
     Route: 048
     Dates: start: 2012
  9. EXCEDDRIN MIGRAINE [Concomitant]
     Indication: MIGRAINE
     Route: 048
  10. PRENATAL VITAMINS [Concomitant]
     Indication: SUPPLEMENTATION THERAPY
     Route: 048
     Dates: start: 201210

REACTIONS (1)
  - Hereditary angioedema [Recovered/Resolved]
